FAERS Safety Report 20487964 (Version 1)
Quarter: 2022Q1

REPORT INFORMATION
  Report Type: Spontaneous
  Country: FR (occurrence: FR)
  Receive Date: 20220218
  Receipt Date: 20220218
  Transmission Date: 20220423
  Serious: Yes (Congenital Anomaly)
  Sender: FDA-Public Use
  Company Number: FR-ABBVIE-22K-056-4283286-00

PATIENT
  Sex: Female

DRUGS (1)
  1. VALPROATE SODIUM [Suspect]
     Active Substance: VALPROATE SODIUM
     Indication: Maternal exposure timing unspecified
     Route: 064

REACTIONS (5)
  - Fine motor skill dysfunction [Unknown]
  - Dyspraxia [Unknown]
  - Dysgraphia [Unknown]
  - Disturbance in attention [Unknown]
  - Foetal exposure during pregnancy [Unknown]
